FAERS Safety Report 6641937-2 (Version None)
Quarter: 2010Q1

REPORT INFORMATION
  Report Type: 
  Country: None (occurrence: None)
  Receive Date: 20100319
  Receipt Date: 20100308
  Transmission Date: 20100710
  Serious: Yes (Other)
  Sender: FDA-Public Use
  Company Number: PHHY2010DE13952

PATIENT
  Age: 41 Year
  Sex: Male

DRUGS (1)
  1. LEPONEX [Suspect]
     Indication: SCHIZOPHRENIA, PARANOID TYPE
     Dosage: 350 MG/DAY
     Route: 048

REACTIONS (2)
  - CARDIOMEGALY [None]
  - MITRAL VALVE INCOMPETENCE [None]
